FAERS Safety Report 19062525 (Version 4)
Quarter: 2021Q2

REPORT INFORMATION
  Report Type: Spontaneous
  Country: US (occurrence: US)
  Receive Date: 20210326
  Receipt Date: 20210510
  Transmission Date: 20210717
  Serious: Yes (Other)
  Sender: FDA-Public Use
  Company Number: US-PFIZER INC-2021320849

PATIENT
  Age: 4 Decade
  Sex: Female
  Weight: 54.43 kg

DRUGS (1)
  1. EPINEPHRINE. [Suspect]
     Active Substance: EPINEPHRINE
     Indication: ANAESTHESIA ORAL
     Dosage: UNK (GIVEN ONCE AS PART OF LOCAL ANESTHESIA)

REACTIONS (3)
  - Blood pressure decreased [Unknown]
  - Loss of consciousness [Recovered/Resolved]
  - Drug hypersensitivity [Unknown]
